FAERS Safety Report 24935486 (Version 1)
Quarter: 2025Q1

REPORT INFORMATION
  Report Type: Spontaneous
  Country: CZ (occurrence: CZ)
  Receive Date: 20250206
  Receipt Date: 20250206
  Transmission Date: 20250409
  Serious: Yes (Other)
  Sender: CELLTRION
  Company Number: CZ-CELLTRION INC.-2025CZ003238

PATIENT

DRUGS (1)
  1. INFLIXIMAB [Suspect]
     Active Substance: INFLIXIMAB
     Indication: Product used for unknown indication
     Route: 058
     Dates: end: 20241108

REACTIONS (2)
  - Hysterectomy [Recovering/Resolving]
  - Neoplasm [Recovering/Resolving]

NARRATIVE: CASE EVENT DATE: 20241120
